FAERS Safety Report 9156275 (Version 1)
Quarter: 2013Q1

REPORT INFORMATION
  Report Type: Report from Study
  Country: FR (occurrence: FR)
  Receive Date: 20130311
  Receipt Date: 20130311
  Transmission Date: 20140127
  Serious: Yes (Hospitalization)
  Sender: FDA-Public Use
  Company Number: FR-BRISTOL-MYERS SQUIBB COMPANY-16906315

PATIENT
  Age: 70 Year
  Sex: Male
  Weight: 63 kg

DRUGS (20)
  1. PACLITAXEL [Suspect]
     Indication: METASTATIC GASTRIC CANCER
     Dosage: LAST DOSE ON 7AUG2012
     Route: 042
     Dates: start: 20120703, end: 20120831
  2. LASILIX [Concomitant]
     Dates: start: 20120217
  3. DIFFU-K [Concomitant]
     Dates: start: 20120217
  4. FORADIL [Concomitant]
     Dates: start: 20120601
  5. KEAL [Concomitant]
     Dates: start: 2001
  6. BIPERIDYS [Concomitant]
     Dates: start: 2006
  7. BETAINE CITRATE [Concomitant]
     Dates: start: 20120217
  8. CHARCOAL ACTIVATED [Concomitant]
     Dates: start: 20120725
  9. BURINEX [Concomitant]
     Dates: start: 20120622
  10. RETINOL [Concomitant]
     Dates: start: 20120801
  11. METHYLPREDNISONE [Concomitant]
  12. ALBUMIN [Concomitant]
     Dates: start: 20120807, end: 20120808
  13. SILODOSIN [Concomitant]
     Dates: start: 2010
  14. AVODART [Concomitant]
     Dates: start: 2010
  15. ISKEDYL FORT [Concomitant]
     Dates: start: 2001
  16. VASTAREL [Concomitant]
     Dates: start: 2001
  17. SODIUM BICARBONATE [Concomitant]
     Dates: start: 20120704
  18. CHLORHEXIDINE [Concomitant]
     Dates: start: 20120711
  19. INEXIUM [Concomitant]
     Dates: start: 2007
  20. GRANOCYTE [Concomitant]
     Dates: start: 20120810, end: 20120812

REACTIONS (1)
  - Dyspnoea [Recovered/Resolved]
